FAERS Safety Report 10288133 (Version 2)
Quarter: 2014Q3

REPORT INFORMATION
  Report Type: Spontaneous
  Country: US (occurrence: None)
  Receive Date: 20140707
  Receipt Date: 20140717
  Transmission Date: 20150326
  Serious: Yes (Hospitalization)
  Sender: FDA-Public Use
  Company Number: UNT-2014-003101

PATIENT
  Age: 71 Year
  Sex: Female

DRUGS (2)
  1. SILDENAFIL (SILDENAFIL) [Concomitant]
     Active Substance: SILDENAFIL
  2. REMODULIN [Suspect]
     Active Substance: TREPROSTINIL
     Indication: COR PULMONALE CHRONIC
     Dosage: 0.070-0.071 UG/KG, CONTINUING, IV DRIP
     Route: 041
     Dates: start: 20120616

REACTIONS (4)
  - Dyspnoea [None]
  - Blood pressure inadequately controlled [None]
  - Renal failure acute [None]
  - Peripheral swelling [None]

NARRATIVE: CASE EVENT DATE: 20140403
